FAERS Safety Report 9717158 (Version 1)
Quarter: 2013Q4

REPORT INFORMATION
  Report Type: Spontaneous
  Country: DE (occurrence: DE)
  Receive Date: 20131127
  Receipt Date: 20131127
  Transmission Date: 20140711
  Serious: Yes (Hospitalization)
  Sender: FDA-Public Use
  Company Number: DE-B.I. PHARMACEUTICALS,INC./RIDGEFIELD-2013-BI-38892DE

PATIENT
  Age: 83 Year
  Sex: Female

DRUGS (5)
  1. PRADAXA [Suspect]
     Indication: ATRIAL FIBRILLATION
     Dosage: 220 MG
     Dates: end: 20130904
  2. BISOPROLOL [Concomitant]
     Indication: HYPERTENSION
     Dosage: 2 ANZ
  3. COLECALCIFEROL [Concomitant]
     Dosage: 1000 U
  4. JODID [Concomitant]
     Dosage: 100 MCG
  5. PREDNISOLON [Concomitant]
     Dates: start: 20130902, end: 20130908

REACTIONS (2)
  - Alanine aminotransferase increased [Recovered/Resolved]
  - Aspartate aminotransferase increased [Recovered/Resolved]
